FAERS Safety Report 18752306 (Version 1)
Quarter: 2021Q1

REPORT INFORMATION
  Report Type: Spontaneous
  Country: US (occurrence: US)
  Receive Date: 20210118
  Receipt Date: 20210118
  Transmission Date: 20210419
  Serious: No
  Sender: FDA-Public Use
  Company Number: US-FOUNDATIONCONSUMERHC-2020-US-023813

PATIENT
  Age: 22 Year
  Sex: Female
  Weight: 81.65 kg

DRUGS (2)
  1. PLAN B ONE?STEP [Suspect]
     Active Substance: LEVONORGESTREL
     Indication: POST COITAL CONTRACEPTION
     Dates: start: 20200920, end: 20200920
  2. NEXPLANON [Concomitant]
     Active Substance: ETONOGESTREL
     Dates: start: 2019

REACTIONS (4)
  - Vaginal discharge [Recovered/Resolved]
  - Intentional product misuse [Recovered/Resolved]
  - Menstruation irregular [Unknown]
  - Product use in unapproved indication [Recovered/Resolved]

NARRATIVE: CASE EVENT DATE: 20200920
